FAERS Safety Report 8759231 (Version 1)
Quarter: 2012Q4

REPORT INFORMATION
  Report Type: 
  Country: MX (occurrence: MX)
  Receive Date: 20120829
  Receipt Date: 20120829
  Transmission Date: 20130627
  Serious: Yes (Death, Hospitalization)
  Sender: FDA-Public Use
  Company Number: MX-UCBSA-064294

PATIENT
  Age: 24 Month
  Sex: Male
  Weight: 7.2 kg

DRUGS (2)
  1. KEPPRA [Suspect]
     Indication: CONVULSION
     Route: 048
     Dates: start: 20101007, end: 20120725
  2. PHENOBARBITAL [Concomitant]
     Indication: CONVULSION
     Route: 048
     Dates: start: 20101007, end: 20120725

REACTIONS (5)
  - Cardio-respiratory arrest [Fatal]
  - Aspiration bronchial [Fatal]
  - Asphyxia [Fatal]
  - Pneumonia [Recovering/Resolving]
  - Pyrexia [Not Recovered/Not Resolved]
